FAERS Safety Report 17629325 (Version 1)
Quarter: 2020Q2

REPORT INFORMATION
  Report Type: Spontaneous
  Country: GB (occurrence: GB)
  Receive Date: 20200406
  Receipt Date: 20200406
  Transmission Date: 20200713
  Serious: Yes (Hospitalization)
  Sender: FDA-Public Use
  Company Number: GB-ADVANZ PHARMA-202003001988

PATIENT

DRUGS (7)
  1. CALCIUM AND COLECALCIFEROL [Concomitant]
     Dosage: 400UNIT/1.5G
     Route: 048
     Dates: start: 20191230
  2. CLOPIDOGREL [Concomitant]
     Active Substance: CLOPIDOGREL BISULFATE
  3. ALENDRONIC ACID [Concomitant]
     Active Substance: ALENDRONIC ACID
     Dosage: ON SATURDAY
     Route: 048
     Dates: start: 20191230
  4. PREDNISOLONE. [Suspect]
     Active Substance: PREDNISOLONE
     Dosage: 60MG ONCE DAILY FOR TWO WEEKS THEN REDUCING CHART.  WAS ON 20MG AT ADMISSION; TABLET
     Route: 048
  5. PREDNISOLONE. [Suspect]
     Active Substance: PREDNISOLONE
     Indication: TEMPORAL ARTERITIS
     Dosage: 60MG ONCE DAILY FOR TWO WEEKS THEN REDUCING CHART.  WAS ON 20MG AT ADMISSION; TABLET
     Route: 048
     Dates: start: 20191230
  6. LANSOPRAZOLE. [Concomitant]
     Active Substance: LANSOPRAZOLE
  7. ATORVASTATIN [Concomitant]
     Active Substance: ATORVASTATIN
     Dosage: 20 MG, QD
     Route: 048

REACTIONS (1)
  - Hyperglycaemia [Recovered/Resolved]

NARRATIVE: CASE EVENT DATE: 20200228
